FAERS Safety Report 9335026 (Version 1)
Quarter: 2013Q2

REPORT INFORMATION
  Report Type: Other
  Country: IL (occurrence: IL)
  Receive Date: 20130606
  Receipt Date: 20130606
  Transmission Date: 20140414
  Serious: Yes (Hospitalization)
  Sender: FDA-Public Use
  Company Number: IL-TARO PHARMACEUTICALS U.S.A., INC-2013SUN00670

PATIENT
  Age: 73 Year
  Sex: Female

DRUGS (1)
  1. ETOPAN [Suspect]
     Indication: PRODUCT USED FOR UNKNOWN INDICATION
     Route: 065

REACTIONS (5)
  - Multi-organ failure [Unknown]
  - Respiratory failure [Unknown]
  - Haemolysis [Unknown]
  - Hepatic failure [Unknown]
  - Renal failure [Unknown]
